FAERS Safety Report 14495169 (Version 5)
Quarter: 2018Q3

REPORT INFORMATION
  Report Type: Report from Study
  Country: US (occurrence: US)
  Receive Date: 20180206
  Receipt Date: 20180716
  Transmission Date: 20181010
  Serious: Yes (Hospitalization, Other)
  Sender: FDA-Public Use
  Company Number: US-ACTELION-A-NJ2017-160336

PATIENT
  Age: 60 Year
  Sex: Female
  Weight: 79.82 kg

DRUGS (29)
  1. ALBUTEROL. [Concomitant]
     Active Substance: ALBUTEROL
     Dosage: 3 ML, Q6HRS PRN
  2. CLONAZEPAM. [Concomitant]
     Active Substance: CLONAZEPAM
     Dosage: 0.5 MG AM AND 1.5 PM
     Route: 048
  3. MAGNESIUM [Concomitant]
     Active Substance: MAGNESIUM
  4. OMEPRAZOLE. [Concomitant]
     Active Substance: OMEPRAZOLE
     Dosage: 40 MG, BID
     Route: 048
  5. RISPERIDONE. [Suspect]
     Active Substance: RISPERIDONE
     Indication: PRODUCT USED FOR UNKNOWN INDICATION
     Dosage: 3 MG, QPM
     Route: 048
  6. BUTALBITAL APAP CAFFEINE [Concomitant]
     Dosage: TID PRN
  7. FERROUS SULFATE. [Concomitant]
     Active Substance: FERROUS SULFATE
     Dosage: 325 MG, QD
  8. GABAPENTIN. [Concomitant]
     Active Substance: GABAPENTIN
     Dosage: 300 MG, TID
     Route: 048
  9. AMLODIPINE [Concomitant]
     Active Substance: AMLODIPINE BESYLATE
     Dosage: 10 MG, QD
     Route: 048
  10. IRON [Concomitant]
     Active Substance: IRON
  11. TIZANIDINE. [Concomitant]
     Active Substance: TIZANIDINE
     Dosage: 2 MG, UNK
     Route: 048
  12. UPTRAVI [Suspect]
     Active Substance: SELEXIPAG
     Dosage: 100 MCG, BID
     Route: 048
  13. ONDANSETRON [Concomitant]
     Active Substance: ONDANSETRON
     Dosage: UNK, PRN
     Route: 048
  14. TYVASO [Concomitant]
     Active Substance: TREPROSTINIL
  15. FUROSEMIDE. [Concomitant]
     Active Substance: FUROSEMIDE
     Dosage: 80 MG, BID
     Route: 048
  16. WARFARIN [Concomitant]
     Active Substance: WARFARIN
  17. MAGNESIUM OXIDE. [Concomitant]
     Active Substance: MAGNESIUM OXIDE
     Dosage: 420 MG, UNK
     Route: 048
  18. FAMOTIDINE. [Concomitant]
     Active Substance: FAMOTIDINE
     Dosage: 20 MG, QD
     Route: 048
  19. ALBUTEROL W/IPRATROPIUM [Concomitant]
     Active Substance: ALBUTEROL\IPRATROPIUM
  20. MOMETASONE [Concomitant]
     Active Substance: MOMETASONE
     Route: 055
  21. UPTRAVI [Suspect]
     Active Substance: SELEXIPAG
     Dosage: 600 MCG, BID
     Route: 048
  22. PAROXETINE. [Concomitant]
     Active Substance: PAROXETINE
     Dosage: 40 MG, UNK
     Route: 048
  23. TENOFOVIR [Concomitant]
     Active Substance: TENOFOVIR
     Dosage: 300 MG, QD
     Route: 048
  24. UPTRAVI [Suspect]
     Active Substance: SELEXIPAG
     Indication: PULMONARY ARTERIAL HYPERTENSION
     Dosage: 200 MCG, BID
     Route: 048
  25. SILDENAFIL CITRATE. [Concomitant]
     Active Substance: SILDENAFIL CITRATE
     Dosage: 25 MG, UNK
     Route: 048
  26. INSULIN [Concomitant]
     Active Substance: INSULIN NOS
  27. LEVETIRACETAM. [Concomitant]
     Active Substance: LEVETIRACETAM
     Dosage: 500 MG, BID
  28. BISACODYL. [Concomitant]
     Active Substance: BISACODYL
     Dosage: UNK, PRN
     Route: 054
  29. FLUTICASONE. [Concomitant]
     Active Substance: FLUTICASONE
     Dosage: UNK, QD
     Route: 055

REACTIONS (11)
  - Mental status changes [Unknown]
  - Fluid retention [Unknown]
  - Dyspnoea [Unknown]
  - Ascites [Unknown]
  - Cough [Unknown]
  - Diarrhoea [Not Recovered/Not Resolved]
  - Headache [Not Recovered/Not Resolved]
  - Hypotension [Unknown]
  - Encephalopathy [Unknown]
  - Hyperhidrosis [Not Recovered/Not Resolved]
  - Migraine [Not Recovered/Not Resolved]

NARRATIVE: CASE EVENT DATE: 2017
